FAERS Safety Report 8323032-X (Version None)
Quarter: 2012Q2

REPORT INFORMATION
  Report Type: 
  Country: None (occurrence: None)
  Receive Date: 20120430
  Receipt Date: 20120414
  Transmission Date: 20120825
  Serious: Yes (Other)
  Sender: FDA-Public Use
  Company Number: US-ENDO PHARMACEUTICALS INC.-OPCR20120237

PATIENT
  Sex: Female

DRUGS (2)
  1. OPANA ER [Suspect]
     Indication: PAIN
     Route: 048
     Dates: start: 20120406
  2. OPANA ER [Concomitant]
     Indication: PAIN
     Route: 048
     Dates: start: 20110101, end: 20120101

REACTIONS (6)
  - NON-CARDIAC CHEST PAIN [None]
  - OESOPHAGEAL IRRITATION [None]
  - DRUG EFFECT DECREASED [None]
  - DYSPNOEA [None]
  - URTICARIA [None]
  - FOREIGN BODY [None]
